FAERS Safety Report 9487610 (Version 2)
Quarter: 2013Q3

REPORT INFORMATION
  Report Type: Spontaneous
  Country: US (occurrence: US)
  Receive Date: 20130725
  Receipt Date: 20130725
  Transmission Date: 20140515
  Serious: Yes (Hospitalization)
  Sender: FDA-Public Use
  Company Number: US-GLAXOSMITHKLINE-A0833029A

PATIENT
  Sex: Female
  Weight: 110.5 kg

DRUGS (7)
  1. AVANDIA [Suspect]
     Indication: DIABETES MELLITUS
     Dosage: 8MG PER DAY
     Route: 048
     Dates: start: 20020919, end: 20030714
  2. INSULIN [Concomitant]
  3. GLUCOPHAGE [Concomitant]
  4. LIPITOR [Concomitant]
  5. HCTZ [Concomitant]
  6. AMITRIPTYLINE [Concomitant]
  7. ALLOPURINOL [Concomitant]

REACTIONS (1)
  - Cardiac failure congestive [Not Recovered/Not Resolved]
